FAERS Safety Report 24607327 (Version 2)
Quarter: 2025Q2

REPORT INFORMATION
  Report Type: Spontaneous
  Country: US (occurrence: US)
  Receive Date: 20241112
  Receipt Date: 20250415
  Transmission Date: 20250717
  Serious: Yes (Other)
  Sender: COOPERSURGICAL
  Company Number: US-COOPERSURGICAL, INC.-2024CPS003346

PATIENT
  Age: 34 Year
  Sex: Female
  Weight: 105.67 kg

DRUGS (5)
  1. PARAGARD T 380A [Suspect]
     Active Substance: COPPER
     Indication: Contraception
     Route: 015
     Dates: start: 20140718
  2. LOSARTAN [Concomitant]
     Active Substance: LOSARTAN
     Dates: start: 2009
  3. CELEXA [Concomitant]
     Active Substance: CITALOPRAM HYDROBROMIDE
     Dates: start: 2009
  4. NORVASC [Concomitant]
     Active Substance: AMLODIPINE BESYLATE
     Dates: start: 2009, end: 2022
  5. ATENOLOL [Concomitant]
     Active Substance: ATENOLOL
     Dates: start: 2009, end: 2021

REACTIONS (11)
  - Reproductive complication associated with device [Not Recovered/Not Resolved]
  - Device breakage [Not Recovered/Not Resolved]
  - Foreign body in reproductive tract [Not Recovered/Not Resolved]
  - Complication of device removal [Not Recovered/Not Resolved]
  - Embedded device [Not Recovered/Not Resolved]
  - Emotional disorder [Unknown]
  - Procedural pain [Recovered/Resolved]
  - Anxiety [Unknown]
  - Coital bleeding [Unknown]
  - Device expulsion [Recovered/Resolved]
  - Dysmenorrhoea [Unknown]

NARRATIVE: CASE EVENT DATE: 20210601
